FAERS Safety Report 24200944 (Version 1)
Quarter: 2024Q3

REPORT INFORMATION
  Report Type: Spontaneous
  Country: US (occurrence: US)
  Receive Date: 20240812
  Receipt Date: 20240812
  Transmission Date: 20241017
  Serious: No
  Sender: MYLAN
  Company Number: US-MYLANLABS-2024M1072373

PATIENT
  Age: 48 Year
  Weight: 113.4 kg

DRUGS (4)
  1. ESTRADIOL TRANSDERMAL SYSTEM [Suspect]
     Active Substance: ESTRADIOL
     Indication: Product used for unknown indication
     Dosage: 0.025 MILLIGRAM, QD (ONCE WEEKLY)
     Route: 062
     Dates: start: 20240415, end: 20240728
  2. AMITRIPTYLINE [Concomitant]
     Active Substance: AMITRIPTYLINE
     Dosage: 50 MILLIGRAM, HS
     Route: 065
  3. LISINOPRIL [Concomitant]
     Active Substance: LISINOPRIL
     Dosage: 20 MILLIGRAM, HS
     Route: 065
  4. PROGESTERONE [Concomitant]
     Active Substance: PROGESTERONE
     Dosage: 200 MILLIGRAM, HS
     Route: 065

REACTIONS (5)
  - Chemical burn of skin [Unknown]
  - Erythema [Unknown]
  - Application site pruritus [Unknown]
  - Application site pain [Unknown]
  - Application site rash [Unknown]

NARRATIVE: CASE EVENT DATE: 20240515
